FAERS Safety Report 8737720 (Version 2)
Quarter: 2012Q4

REPORT INFORMATION
  Report Type: 
  Country: AU (occurrence: AU)
  Receive Date: 20120822
  Receipt Date: 20121130
  Transmission Date: 20130627
  Serious: Yes (Other)
  Sender: FDA-Public Use
  Company Number: AU-009507513-1208AUS001910

PATIENT
  Age: 39 Year
  Sex: Female
  Weight: 60 kg

DRUGS (3)
  1. SAPHRIS [Suspect]
     Indication: AFFECTIVE DISORDER
     Dosage: 5 mg, UNK
     Route: 060
  2. SAPHRIS [Suspect]
     Dosage: UNK
     Route: 060
  3. EFEXOR [Concomitant]
     Dosage: 150 mg, qd

REACTIONS (1)
  - Obsessive-compulsive disorder [Recovered/Resolved]
